FAERS Safety Report 5376196-4 (Version None)
Quarter: 2007Q2

REPORT INFORMATION
  Report Type: 
  Country: None (occurrence: None)
  Receive Date: 20070628
  Receipt Date: 20070622
  Transmission Date: 20071010
  Serious: Yes (Death)
  Sender: FDA-Public Use
  Company Number: 6034927

PATIENT
  Age: 77 Year
  Sex: Female

DRUGS (24)
  1. BISOPRODOL FUMARATE [Suspect]
     Indication: DRUG USE FOR UNKNOWN INDICATION
     Dosage: SEE IMAGE
     Route: 048
     Dates: start: 20061128, end: 20070111
  2. BISOPRODOL FUMARATE [Suspect]
     Indication: DRUG USE FOR UNKNOWN INDICATION
     Dosage: SEE IMAGE
     Route: 048
     Dates: start: 20070112, end: 20070128
  3. DIGOXIN [Suspect]
     Indication: DRUG USE FOR UNKNOWN INDICATION
     Dosage: SEE IMAGE
     Route: 048
     Dates: start: 20060615, end: 20070112
  4. DIGOXIN [Suspect]
     Indication: DRUG USE FOR UNKNOWN INDICATION
     Dosage: SEE IMAGE
     Route: 048
     Dates: start: 20070125
  5. BURINEX (TABLET) (BUMETANIDE) [Suspect]
     Indication: DRUG USE FOR UNKNOWN INDICATION
     Dosage: 1 DOSAGE FORMS (1 DOSAGE FORMS,1 IN 1 D),ORAL
     Route: 048
     Dates: start: 20070112, end: 20070124
  6. BURINEX (TABLET) (BUMETANIDE) [Suspect]
     Indication: DRUG USE FOR UNKNOWN INDICATION
     Dosage: 1 DOSAGE FORMS (1 DOSAGE FORMS,1 IN 1 D),ORAL
     Route: 048
     Dates: start: 20070125
  7. IPERTEN(TABLET) (MANIDIPINE HYDROCHLORIDE) [Concomitant]
  8. AVANDIA [Concomitant]
  9. KARDEGIC(POWDER FOR ORAL SOLUTION) (ACETYLSALICYLATE LYSINE) [Concomitant]
  10. ALLOPURINOL [Concomitant]
  11. CRESTOR (10 MG, TABLET) (ROSUVASTATIN) [Concomitant]
  12. PREVISCAN(TABLET) (FLUINDIONE) [Concomitant]
  13. CALCIDIA(1,54 GRAN, POWDER FOR ORAL SOLUTION) (CALCIUM CARBONATE) [Concomitant]
  14. ULCAR (POWDER FOR ORAL SOLUTION) (SUCRALFATE) [Concomitant]
  15. TARDYFERON (TABLET) (FERROUS SULFATE) [Concomitant]
  16. DIFFU K(CAPSULE) (POTASSIUM CHLORIDE) [Concomitant]
  17. LEXOMIL(TABLET) (BROMAZEPAM) [Concomitant]
  18. NITRIDERM(TRANSDERMAL PATCH) (GLYCERYL TRINITRATE) [Concomitant]
  19. OXYGEN (OXYGEN) [Concomitant]
  20. ATROVENT(NEBULISER SOLUTION) (IPRATROPIUM BROMIDE) [Concomitant]
  21. LASILIX(500 MG) (FUROSEMIDE) [Concomitant]
  22. NPH INSULIN (INSULIN INJECTION, ISOPHANE) [Concomitant]
  23. NOVONORM(TABLET) (REPAGLINIDE) [Concomitant]
  24. MONOCRIXO(CAPSULE) (TRAMADOL HYDROCHLORIDE) [Concomitant]

REACTIONS (12)
  - ACUTE PULMONARY OEDEMA [None]
  - ATRIAL FIBRILLATION [None]
  - BUNDLE BRANCH BLOCK LEFT [None]
  - CARDIAC FAILURE [None]
  - COMA [None]
  - HAEMODYNAMIC INSTABILITY [None]
  - IATROGENIC INJURY [None]
  - LUNG DISORDER [None]
  - MULTI-ORGAN FAILURE [None]
  - OVERDOSE [None]
  - PLEURAL DISORDER [None]
  - STAPHYLOCOCCAL INFECTION [None]
